FAERS Safety Report 12006245 (Version 1)
Quarter: 2016Q1

REPORT INFORMATION
  Report Type: Report from Study
  Country: US (occurrence: US)
  Receive Date: 20160204
  Receipt Date: 20160204
  Transmission Date: 20160526
  Serious: Yes (Hospitalization)
  Sender: FDA-Public Use
  Company Number: US-ABBVIE-15K-163-1428873-00

PATIENT
  Age: 56 Year
  Sex: Female

DRUGS (2)
  1. HUMIRA [Suspect]
     Active Substance: ADALIMUMAB
     Indication: PSORIATIC ARTHROPATHY
     Route: 058
     Dates: start: 2014
  2. HUMIRA [Suspect]
     Active Substance: ADALIMUMAB
     Indication: CROHN^S DISEASE

REACTIONS (15)
  - Myocardial infarction [Recovered/Resolved]
  - Upper limb fracture [Unknown]
  - Oral infection [Recovered/Resolved]
  - Drug dose omission [Recovered/Resolved]
  - Device issue [Recovered/Resolved]
  - Fall [Recovering/Resolving]
  - Upper limb fracture [Unknown]
  - Foot fracture [Unknown]
  - Transient ischaemic attack [Unknown]
  - Cardiac arrest [Unknown]
  - Mass [Unknown]
  - Limb deformity [Unknown]
  - Upper limb fracture [Unknown]
  - Fall [Unknown]
  - Pain in extremity [Unknown]

NARRATIVE: CASE EVENT DATE: 2015
